FAERS Safety Report 21785068 (Version 1)
Quarter: 2022Q4

REPORT INFORMATION
  Report Type: Spontaneous
  Country: CA (occurrence: CA)
  Receive Date: 20221227
  Receipt Date: 20221227
  Transmission Date: 20230113
  Serious: Yes (Death, Other)
  Sender: FDA-Public Use
  Company Number: CA-PFIZER INC-PV202200048014

PATIENT
  Age: 57 Year
  Sex: Female
  Weight: 37.6 kg

DRUGS (3)
  1. IBRANCE [Suspect]
     Active Substance: PALBOCICLIB
     Indication: Metastatic neoplasm
     Dosage: 1 DF, DAILY (ONE TABLET BY MOUTH DAILY FOR 21 DAYS AND THEN STOP FOR 7 DAYS)
     Route: 048
     Dates: start: 20220823
  2. IBRANCE [Suspect]
     Active Substance: PALBOCICLIB
     Dosage: 125 MG, CYCLIC (TAKE ONE TABLET BY MOUTH DAILY FOR 21 DAYS THEN STOP FOR 7 DAYS), DAILY
     Route: 048
  3. EXEMESTANE [Concomitant]
     Active Substance: EXEMESTANE
     Dosage: UNK, NOT STARTED YET

REACTIONS (3)
  - Death [Fatal]
  - Weight decreased [Unknown]
  - Body surface area decreased [Unknown]

NARRATIVE: CASE EVENT DATE: 20220101
